FAERS Safety Report 4707994-5 (Version None)
Quarter: 2005Q3

REPORT INFORMATION
  Report Type: 
  Country: None (occurrence: None)
  Receive Date: 20050707
  Receipt Date: 20050504
  Transmission Date: 20060218
  Serious: Yes (Other)
  Sender: FDA-Public Use
  Company Number: PHFR2005GB01718

PATIENT
  Age: 26 Year
  Sex: Male

DRUGS (2)
  1. CLOZARIL [Suspect]
     Indication: SCHIZOPHRENIA
     Dosage: 500MG PER DAY
     Route: 048
     Dates: start: 19991130
  2. CLOZARIL [Suspect]
     Dosage: 625MG/DAY
     Dates: end: 20050501

REACTIONS (1)
  - OBSESSIVE-COMPULSIVE DISORDER [None]
